FAERS Safety Report 9883752 (Version 2)
Quarter: 2014Q1

REPORT INFORMATION
  Report Type: Spontaneous
  Country: IT (occurrence: IT)
  Receive Date: 20140210
  Receipt Date: 20140227
  Transmission Date: 20141002
  Serious: Yes (Hospitalization)
  Sender: FDA-Public Use
  Company Number: IT-ELI_LILLY_AND_COMPANY-IT201401011547

PATIENT
  Sex: Female

DRUGS (7)
  1. CYMBALTA [Suspect]
     Indication: TRIGEMINAL NEURALGIA
     Dosage: 30 MG, UNK
     Route: 065
  2. PANTOPRAZOLE [Concomitant]
     Dosage: 40 MG, EACH MORNING
  3. ACETYLSALICYLIC ACID [Concomitant]
     Dosage: 100 MG, QD
  4. BISOPROLOL [Concomitant]
     Dosage: 3.75 MG, EACH MORNING
  5. RAMIPRIL [Concomitant]
     Dosage: 2.5 MG, EACH MORNING
  6. ATORVASTATIN [Concomitant]
     Dosage: 40 MG, EACH EVENING
  7. ZOLPIDEM TARTRATE [Concomitant]

REACTIONS (2)
  - Stress cardiomyopathy [Recovering/Resolving]
  - Off label use [Not Recovered/Not Resolved]
